FAERS Safety Report 10172078 (Version 1)
Quarter: 2014Q2

REPORT INFORMATION
  Report Type: Report from Study
  Country: US (occurrence: US)
  Receive Date: 20140515
  Receipt Date: 20140515
  Transmission Date: 20141212
  Serious: Yes (Hospitalization, Other)
  Sender: FDA-Public Use
  Company Number: US-009507513-1405USA005566

PATIENT
  Age: 56 Year
  Sex: Male
  Weight: 83.8 kg

DRUGS (5)
  1. JANUVIA [Suspect]
     Indication: TYPE 2 DIABETES MELLITUS
     Dosage: 100 MG, 1 IN 1 D
     Route: 048
     Dates: start: 20140115
  2. METFORMIN [Concomitant]
     Indication: DIABETES MELLITUS
     Dosage: 500 MG, BID
     Route: 048
  3. PRINIVIL [Concomitant]
     Indication: HYPERTENSION
     Dosage: 40 MG, QD
     Route: 048
     Dates: start: 2011, end: 20140417
  4. HYDROCHLOROTHIAZIDE (+) TRIAMTERENE [Concomitant]
     Indication: HYPERTENSION
     Dosage: 37.5/25 MG 1 IN 1 D
     Route: 048
     Dates: start: 2010
  5. NOVOLIN [Concomitant]
     Indication: DIABETES MELLITUS
     Dosage: 30 DF, UNK
     Route: 058
     Dates: start: 2008

REACTIONS (1)
  - Pancreatitis [Recovered/Resolved]
